FAERS Safety Report 14499544 (Version 1)
Quarter: 2018Q1

REPORT INFORMATION
  Report Type: Spontaneous
  Country: US (occurrence: US)
  Receive Date: 20180207
  Receipt Date: 20180207
  Transmission Date: 20180509
  Serious: No
  Sender: FDA-Public Use
  Company Number: US-PERRIGO-17US023397

PATIENT

DRUGS (1)
  1. CETIRIZINE HYDROCHLORIDE. [Suspect]
     Active Substance: CETIRIZINE HYDROCHLORIDE
     Indication: MATERNAL EXPOSURE DURING BREAST FEEDING
     Dosage: UNKNOWN, UNKNOWN
     Route: 048
     Dates: start: 20170328

REACTIONS (1)
  - Exposure via breast milk [Unknown]

NARRATIVE: CASE EVENT DATE: 20170328
